FAERS Safety Report 10616949 (Version 2)
Quarter: 2015Q2

REPORT INFORMATION
  Report Type: Spontaneous
  Country: US (occurrence: US)
  Receive Date: 20141201
  Receipt Date: 20150424
  Transmission Date: 20150821
  Serious: No
  Sender: FDA-Public Use
  Company Number: US-PFIZER INC-2014326918

PATIENT
  Age: 69 Year
  Sex: Female

DRUGS (13)
  1. HYDROXYCHLOROQUINE SULFATE. [Suspect]
     Active Substance: HYDROXYCHLOROQUINE SULFATE
     Indication: JOINT SWELLING
     Dosage: 200 MG, 2X/DAY
     Dates: start: 2005
  2. SYNTHROID [Suspect]
     Active Substance: LEVOTHYROXINE SODIUM
     Indication: THYROID FUNCTION TEST ABNORMAL
     Dosage: 125 MG, 1X/DAY
     Dates: start: 2005
  3. MULTIVITAMINS [Concomitant]
     Active Substance: VITAMINS
     Dosage: UNK, 1X/DAY
  4. C - [Concomitant]
     Dosage: 1000 MG, 1X/DAY
  5. FOLIC ACID. [Concomitant]
     Active Substance: FOLIC ACID
     Dosage: 800 MG, 1X/DAY
  6. SULFASALAZINE. [Suspect]
     Active Substance: SULFASALAZINE
     Indication: JOINT SWELLING
     Dosage: 750 MG, 2X/DAY
  7. PRAVASTATIN [Suspect]
     Active Substance: PRAVASTATIN\PRAVASTATIN SODIUM
     Indication: BLOOD CHOLESTEROL INCREASED
     Dosage: 40 MG, 1X/DAY
     Dates: start: 2012
  8. VITAMIN C [Concomitant]
     Active Substance: ASCORBIC ACID
     Dosage: 600 MG, 1X/DAY
  9. B12-VITAMIIN [Concomitant]
     Dosage: 500 MG, 1X/DAY
  10. SULFASALAZINE. [Suspect]
     Active Substance: SULFASALAZINE
     Dosage: 500 MG, 2X/DAY
     Dates: start: 2005, end: 201408
  11. SALSALATE. [Suspect]
     Active Substance: SALSALATE
     Dosage: 500 MG, UNK
  12. VITAMIN D [Concomitant]
     Active Substance: CHOLECALCIFEROL
     Dosage: 1000 MG, 1X/DAY
  13. SALSALATE. [Suspect]
     Active Substance: SALSALATE
     Indication: JOINT SWELLING
     Dosage: 750 MG, 2X/DAY
     Dates: end: 201503

REACTIONS (3)
  - Gait disturbance [Recovering/Resolving]
  - Pain in extremity [Recovering/Resolving]
  - Peripheral swelling [Recovering/Resolving]

NARRATIVE: CASE EVENT DATE: 20141028
